FAERS Safety Report 16034816 (Version 2)
Quarter: 2019Q2

REPORT INFORMATION
  Report Type: Spontaneous
  Country: US (occurrence: US)
  Receive Date: 20190305
  Receipt Date: 20190404
  Transmission Date: 20190711
  Serious: No
  Sender: FDA-Public Use
  Company Number: US-VERTEX PHARMACEUTICALS-2019-001883

PATIENT
  Age: 6 Year
  Sex: Female
  Weight: 23 kg

DRUGS (1)
  1. ORKAMBI [Suspect]
     Active Substance: IVACAFTOR\LUMACAFTOR
     Indication: CYSTIC FIBROSIS
     Dosage: 2 DOSAGE FORM, BID
     Route: 048

REACTIONS (5)
  - Influenza [Unknown]
  - Bronchial disorder [Not Recovered/Not Resolved]
  - Increased bronchial secretion [Not Recovered/Not Resolved]
  - Weight decreased [Not Recovered/Not Resolved]
  - Ear infection [Unknown]

NARRATIVE: CASE EVENT DATE: 2019
